FAERS Safety Report 15265116 (Version 2)
Quarter: 2018Q3

REPORT INFORMATION
  Report Type: Spontaneous
  Country: JP (occurrence: JP)
  Receive Date: 20180810
  Receipt Date: 20180817
  Transmission Date: 20181010
  Serious: No
  Sender: FDA-Public Use
  Company Number: JP-AMGEN-JPNSP2018108399

PATIENT
  Sex: Female

DRUGS (2)
  1. REPATHA [Suspect]
     Active Substance: EVOLOCUMAB
     Indication: PRODUCT USED FOR UNKNOWN INDICATION
     Dosage: UNK
     Route: 058
  2. ZETIA [Concomitant]
     Active Substance: EZETIMIBE

REACTIONS (5)
  - Myalgia [Unknown]
  - Peau d^orange [Unknown]
  - Pain in extremity [Unknown]
  - Muscle fatigue [Unknown]
  - Pruritus [Unknown]
